FAERS Safety Report 20044068 (Version 1)
Quarter: 2021Q4

REPORT INFORMATION
  Report Type: Spontaneous
  Country: US (occurrence: US)
  Receive Date: 20211108
  Receipt Date: 20211108
  Transmission Date: 20220303
  Serious: Yes (Other)
  Sender: FDA-Public Use
  Company Number: US-NOVOPROD-854691

PATIENT
  Sex: Female

DRUGS (2)
  1. LEVEMIR [Suspect]
     Active Substance: INSULIN DETEMIR
     Indication: Product used for unknown indication
     Dosage: 30-35 UNITS IN THE MORNING AND 8-11 UNITS IN THE EVENING
     Route: 058
  2. METFORMIN [Suspect]
     Active Substance: METFORMIN HYDROCHLORIDE
     Indication: Product used for unknown indication
     Dosage: 500 MG BID ( AT LUNCHTIME AND SUPPERTIME)
     Route: 065

REACTIONS (4)
  - Dementia Alzheimer^s type [Unknown]
  - Neuropathy peripheral [Not Recovered/Not Resolved]
  - Hypoglycaemia [Unknown]
  - Blood glucose increased [Unknown]
